FAERS Safety Report 25135209 (Version 2)
Quarter: 2025Q3

REPORT INFORMATION
  Report Type: Report from Study
  Country: US (occurrence: US)
  Receive Date: 20250328
  Receipt Date: 20250809
  Transmission Date: 20251020
  Serious: Yes (Other)
  Sender: ALEXION PHARMACEUTICALS
  Company Number: US-AstraZeneca-CH-00823892A

PATIENT
  Age: 64 Year
  Sex: Male
  Weight: 86.636 kg

DRUGS (20)
  1. ACALABRUTINIB [Suspect]
     Active Substance: ACALABRUTINIB
     Indication: Chronic lymphocytic leukaemia
     Dosage: 100 MILLIGRAM, Q12H
     Dates: start: 202203
  2. ATORVASTATIN [Concomitant]
     Active Substance: ATORVASTATIN
  3. BENICAR [Concomitant]
     Active Substance: OLMESARTAN MEDOXOMIL
  4. BYSTOLIC [Concomitant]
     Active Substance: NEBIVOLOL HYDROCHLORIDE
  5. CYCLOBENZAPRINE [Concomitant]
     Active Substance: CYCLOBENZAPRINE
  6. DEXAMETHASONE [Concomitant]
     Active Substance: DEXAMETHASONE
  7. DEXILANT [Concomitant]
     Active Substance: DEXLANSOPRAZOLE
  8. DOXYCYCLINE HYCLATE [Concomitant]
     Active Substance: DOXYCYCLINE HYCLATE
     Route: 065
  9. EFUDEX [Concomitant]
     Active Substance: FLUOROURACIL
  10. EMETROL [Concomitant]
     Active Substance: DEXTROSE\FRUCTOSE\PHOSPHORIC ACID
     Route: 065
  11. EVUSHELD [Concomitant]
     Active Substance: CILGAVIMAB\TIXAGEVIMAB
  12. FLUZONE [Concomitant]
     Active Substance: INFLUENZA VIRUS VACCINE
  13. HYDROCHLOROTHIAZIDE [Concomitant]
     Active Substance: HYDROCHLOROTHIAZIDE
  14. MUCINEX [Concomitant]
     Active Substance: GUAIFENESIN
  15. NORVASC [Concomitant]
     Active Substance: AMLODIPINE BESYLATE
  16. OXYCONTIN [Concomitant]
     Active Substance: OXYCODONE HYDROCHLORIDE
     Route: 065
  17. SHINGRIX [Concomitant]
     Active Substance: RECOMBINANT VARICELLA ZOSTER VIRUS (VZV) GLYCOPROTEIN E
  18. INFLUENZA VIRUS VACCINE [Concomitant]
     Active Substance: INFLUENZA VIRUS VACCINE
  19. XARELTO [Concomitant]
     Active Substance: RIVAROXABAN
  20. PFIZER-BIONTECH COVID-19 VACCINE [Concomitant]
     Active Substance: TOZINAMERAN

REACTIONS (6)
  - Oesophageal dilatation [Unknown]
  - Vomiting [Not Recovered/Not Resolved]
  - Oesophageal spasm [Not Recovered/Not Resolved]
  - Weight decreased [Not Recovered/Not Resolved]
  - Dysphagia [Unknown]
  - Muscle contractions involuntary [Unknown]

NARRATIVE: CASE EVENT DATE: 20240101
